FAERS Safety Report 4850380-8 (Version None)
Quarter: 2005Q4

REPORT INFORMATION
  Report Type: 
  Country: None (occurrence: None)
  Receive Date: 20051123
  Receipt Date: 20051003
  Transmission Date: 20060501
  Serious: Yes (Hospitalization, Other)
  Sender: FDA-Public Use
  Company Number: 216192

PATIENT
  Age: 80 Year
  Sex: Female
  Weight: 76.6 kg

DRUGS (6)
  1. RAPTIVA [Suspect]
     Indication: PSORIASIS
     Dosage: 0.7 ML, 1/WEEK, SUBCUTANEOUS
     Route: 058
     Dates: start: 20040101, end: 20050101
  2. ASPIRIN [Concomitant]
  3. NITROGLYCERIN PATCH (NITROGLYCERIN PATCH) [Concomitant]
  4. LASIX [Concomitant]
  5. BUPROFEN (IBUPROFEN) [Concomitant]
  6. LOOD PRESSURE MEDICATION NOS (ANTIHYPERTENSIVE NOS) [Concomitant]

REACTIONS (1)
  - NON-HODGKIN'S LYMPHOMA [None]
